FAERS Safety Report 8202247-5 (Version None)
Quarter: 2012Q1

REPORT INFORMATION
  Report Type: 
  Country: None (occurrence: None)
  Receive Date: 20120312
  Receipt Date: 20120302
  Transmission Date: 20120608
  Serious: Yes (Other)
  Sender: FDA-Public Use
  Company Number: US-ASTRAZENECA-2012SE13340

PATIENT
  Age: 52 Year
  Sex: Male
  Weight: 91.6 kg

DRUGS (13)
  1. LISINOPRIL [Concomitant]
     Indication: DIURETIC THERAPY
     Dosage: 20/12.5 MG
  2. METHOTREXATE [Concomitant]
     Indication: RHEUMATOID ARTHRITIS
  3. SEROQUEL [Suspect]
     Indication: BIPOLAR DISORDER
     Route: 048
  4. HYDROXYCHLOR [Concomitant]
     Indication: BLOOD CHOLESTEROL
  5. METFORMIN HCL [Concomitant]
     Indication: DIABETES MELLITUS
     Dosage: 1000 MG
  6. SEROQUEL [Suspect]
     Route: 048
  7. FLUOXETINE [Concomitant]
     Dosage: 10 MG
  8. MELOXICAM [Concomitant]
     Indication: RHEUMATOID ARTHRITIS
     Dosage: 7.5/500 MG
  9. GLYBURIDE [Concomitant]
     Indication: DIABETES MELLITUS
     Dosage: 5 MG
  10. CLONAZEPAM [Concomitant]
     Indication: ANXIETY
  11. LISINOPRIL [Concomitant]
     Indication: ANTICOAGULANT THERAPY
     Dosage: 20/12.5 MG
  12. HYDROCODONE BITARTRATE [Concomitant]
     Dosage: 8080, 7.5/500 MG
  13. FOLIC ACID [Concomitant]
     Indication: RHEUMATOID ARTHRITIS
     Dosage: 1 MG

REACTIONS (6)
  - STRESS [None]
  - DRUG DOSE OMISSION [None]
  - INSOMNIA [None]
  - HYPERTENSION [None]
  - CIRCUMSTANCE OR INFORMATION CAPABLE OF LEADING TO MEDICATION ERROR [None]
  - INTRACRANIAL ANEURYSM [None]
